FAERS Safety Report 6331562-5 (Version None)
Quarter: 2009Q3

REPORT INFORMATION
  Report Type: 
  Country: None (occurrence: None)
  Receive Date: 20090827
  Receipt Date: 20090810
  Transmission Date: 20100115
  Serious: Yes (Other)
  Sender: FDA-Public Use
  Company Number: GB-ROCHE-649835

PATIENT
  Age: 40 Year
  Sex: Male

DRUGS (4)
  1. TAMIFLU [Suspect]
     Indication: DRUG USE FOR UNKNOWN INDICATION
     Route: 065
     Dates: start: 20090724, end: 20090728
  2. FLUOXETINE [Concomitant]
  3. DIHYDROCODEINE BITARTRATE INJ [Concomitant]
  4. PARACETAMOL [Concomitant]

REACTIONS (7)
  - ABNORMAL BEHAVIOUR [None]
  - FATIGUE [None]
  - GAIT DISTURBANCE [None]
  - HALLUCINATION, VISUAL [None]
  - PETIT MAL EPILEPSY [None]
  - PSYCHIATRIC SYMPTOM [None]
  - VOMITING [None]
